FAERS Safety Report 17036393 (Version 1)
Quarter: 2019Q4

REPORT INFORMATION
  Report Type: Spontaneous
  Country: US (occurrence: US)
  Receive Date: 20191115
  Receipt Date: 20191115
  Transmission Date: 20200122
  Serious: No
  Sender: FDA-Public Use
  Company Number: US-009507513-1911USA003829

PATIENT
  Sex: Female

DRUGS (12)
  1. ATENOLOL. [Concomitant]
     Active Substance: ATENOLOL
  2. TRIAMTERENE. [Concomitant]
     Active Substance: TRIAMTERENE
  3. LEUPROLIDE [Concomitant]
     Active Substance: LEUPROLIDE
  4. GANIRELIX ACETATE INJECTION [Suspect]
     Active Substance: GANIRELIX ACETATE
     Indication: ASSISTED FERTILISATION
     Dosage: 250 MICROGRAM, QD
     Route: 058
     Dates: start: 20190606
  5. PROTONIX [Concomitant]
     Active Substance: PANTOPRAZOLE SODIUM
  6. PREGNYL [Concomitant]
     Active Substance: CHORIOGONADOTROPIN ALFA
     Dosage: STRENGTH: 10,000 UNITS; DOSE: INJECT 10,000 UNITS INTO THE MUSCLE AREA AS DIRECTED ONCE FOR 1 DOSE
     Dates: start: 20190606
  7. FOLLISTIM AQ [Suspect]
     Active Substance: FOLLITROPIN
     Indication: ASSISTED FERTILISATION
     Dosage: 150 MILLIGRAM, QD
     Route: 058
  8. DOXYCYCLINE. [Concomitant]
     Active Substance: DOXYCYCLINE
  9. NEUPOGEN [Concomitant]
     Active Substance: FILGRASTIM
  10. ESTRADIOL. [Concomitant]
     Active Substance: ESTRADIOL
  11. METFORMIN [Concomitant]
     Active Substance: METFORMIN HYDROCHLORIDE
  12. PUREGON PEN [DEVICE] [Suspect]
     Active Substance: DEVICE

REACTIONS (1)
  - Headache [Unknown]
